FAERS Safety Report 8312138-7 (Version None)
Quarter: 2012Q2

REPORT INFORMATION
  Report Type: 
  Country: None (occurrence: None)
  Receive Date: 20120425
  Receipt Date: 20110808
  Transmission Date: 20120825
  Serious: Yes (Hospitalization, Other)
  Sender: FDA-Public Use
  Company Number: US-TEVA-US017513

PATIENT
  Sex: Female
  Weight: 89 kg

DRUGS (11)
  1. TOPROL-XL [Concomitant]
     Indication: HYPERTENSION
     Dosage: 25 MILLIGRAM;
     Route: 048
     Dates: start: 20010101
  2. ISOSORBIDE MONONITRATE [Concomitant]
     Indication: ANGINA PECTORIS
     Dosage: 20 MILLIGRAM;
     Route: 048
     Dates: start: 20020101
  3. METFORMIN HCL [Concomitant]
     Indication: DIABETES MELLITUS
     Dosage: 1000 MILLIGRAM;
     Route: 048
     Dates: start: 20010101
  4. PROVIGIL [Suspect]
     Dosage: 400 MILLIGRAM;
     Route: 048
     Dates: start: 20060510
  5. PREVACID [Concomitant]
     Indication: GASTROOESOPHAGEAL REFLUX DISEASE
     Dosage: 30 MILLIGRAM;
     Route: 048
     Dates: start: 20010101
  6. PROVIGIL [Suspect]
     Indication: NARCOLEPSY
     Dosage: 400 MILLIGRAM;
     Route: 048
     Dates: start: 20060331, end: 20060508
  7. BENAZEPRIL HYDROCHLORIDE [Concomitant]
     Indication: HYPERTENSION
     Dosage: 10 MILLIGRAM;
     Route: 048
     Dates: start: 20020101
  8. LIPITOR [Concomitant]
     Indication: BLOOD CHOLESTEROL INCREASED
     Dosage: 10 MILLIGRAM;
     Route: 048
     Dates: start: 20050101
  9. FOSAMAX [Concomitant]
     Indication: OSTEOPOROSIS
     Dosage: 10 MILLIGRAM;
     Route: 048
     Dates: start: 20010101
  10. TRAMADOL HCL [Concomitant]
     Indication: PAIN
     Route: 048
     Dates: start: 20040101
  11. ARTHROTEC [Concomitant]
     Indication: ARTHRITIS
     Dosage: 100 MILLIGRAM;
     Route: 048
     Dates: start: 20060502

REACTIONS (2)
  - TREMOR [None]
  - VERTIGO [None]
